FAERS Safety Report 9399807 (Version 1)
Quarter: 2013Q3

REPORT INFORMATION
  Report Type: Spontaneous
  Country: TT (occurrence: TT)
  Receive Date: 20130715
  Receipt Date: 20130715
  Transmission Date: 20140515
  Serious: Yes (Hospitalization, Other)
  Sender: FDA-Public Use
  Company Number: PHHY2013TT051767

PATIENT
  Age: 71 Year
  Sex: Male

DRUGS (7)
  1. CO-DIOVAN [Suspect]
     Indication: ESSENTIAL HYPERTENSION
     Dosage: 1 DF(160/12.5MG), QD
     Dates: start: 201104
  2. CO-DIOVAN [Suspect]
     Indication: PROTEINURIA
     Dosage: 1 DF(160/25MG), QD
     Dates: start: 201108
  3. METFORMIN [Concomitant]
     Dosage: 500 MG, BID
  4. DIGOXIN [Concomitant]
     Dosage: 0.125 MG, QD
  5. ASPIRIN [Concomitant]
     Dosage: 81 MG, QD
  6. GLICLAZIDE [Concomitant]
     Dosage: 80 MG, QD
  7. NEUROBION FORTE [Concomitant]

REACTIONS (7)
  - Congestive cardiomyopathy [Recovered/Resolved]
  - Cardiac failure congestive [Recovered/Resolved]
  - Cardiac failure [Unknown]
  - Supraventricular tachycardia [Recovered/Resolved]
  - Renal impairment [Unknown]
  - Blood pressure increased [Recovered/Resolved]
  - Arrhythmia [Unknown]
